FAERS Safety Report 4734713-9 (Version None)
Quarter: 2005Q3

REPORT INFORMATION
  Report Type: 
  Country: None (occurrence: None)
  Receive Date: 20050804
  Receipt Date: 20050725
  Transmission Date: 20060218
  Serious: Yes (Hospitalization)
  Sender: FDA-Public Use
  Company Number: JP-JNJFOC-20050704565

PATIENT
  Age: 76 Year
  Sex: Female

DRUGS (9)
  1. OFLOCET [Suspect]
     Route: 048
     Dates: start: 20050513, end: 20050516
  2. DIAMICRON [Suspect]
     Indication: DIABETES MELLITUS
     Dosage: 2U
     Route: 048
     Dates: end: 20050516
  3. AUGMENTIN '125' [Suspect]
     Route: 048
     Dates: start: 20050513, end: 20050516
  4. AUGMENTIN '125' [Suspect]
     Route: 048
     Dates: start: 20050513, end: 20050516
  5. ZOVIRAX [Suspect]
     Route: 042
     Dates: start: 20050513, end: 20050516
  6. TAHOR [Suspect]
     Indication: DRUG USE FOR UNKNOWN INDICATION
     Dosage: 1U
     Route: 048
     Dates: end: 20050516
  7. DEPAKENE [Suspect]
     Indication: EPILEPSY
     Dosage: TWICE A DAY. CONTROLLED/MODIFIED RELESE TABLETS
     Route: 048
     Dates: start: 20050513, end: 20050516
  8. GABAPENTIN [Concomitant]
     Indication: EPILEPSY
     Route: 048
     Dates: end: 20050501
  9. ANALGESIC [Concomitant]
     Dates: end: 20050501

REACTIONS (4)
  - HEPATIC ENZYME INCREASED [None]
  - HEPATOCELLULAR DAMAGE [None]
  - HYPERBILIRUBINAEMIA [None]
  - LIPASE INCREASED [None]
